FAERS Safety Report 7904058-4 (Version None)
Quarter: 2011Q4

REPORT INFORMATION
  Report Type: 
  Country: None (occurrence: None)
  Receive Date: 20111109
  Receipt Date: 20111107
  Transmission Date: 20120403
  Serious: Yes (Life-Threatening, Hospitalization)
  Sender: FDA-Public Use
  Company Number: NO-PFIZER INC-2011271401

PATIENT
  Age: 61 Year
  Sex: Female

DRUGS (3)
  1. SULFASALAZINE [Suspect]
     Indication: ARTHRITIS
     Dosage: 1 G, 2X/DAY
     Route: 048
     Dates: start: 20110825, end: 20111003
  2. ATACAND [Concomitant]
     Dosage: UNK
  3. PREDNISOLONE [Suspect]
     Indication: ARTHRITIS
     Dosage: 5 MG, 1X/DAY
     Route: 048
     Dates: start: 20110825

REACTIONS (4)
  - LEUKOPENIA [None]
  - NEUTROPHIL COUNT DECREASED [None]
  - HEPATIC ENZYME ABNORMAL [None]
  - PNEUMOCOCCAL SEPSIS [None]
